FAERS Safety Report 7864271-1 (Version None)
Quarter: 2011Q4

REPORT INFORMATION
  Report Type: 
  Country: None (occurrence: None)
  Receive Date: 20111028
  Receipt Date: 20110526
  Transmission Date: 20120403
  Serious: No
  Sender: FDA-Public Use
  Company Number: US-GLAXOSMITHKLINE-A0865073A

PATIENT
  Age: 70 Year
  Sex: Female

DRUGS (3)
  1. QVAR 40 [Concomitant]
  2. ALBUTEROL [Concomitant]
  3. SEREVENT [Suspect]
     Indication: ASTHMA
     Dosage: 1PUFF TWICE PER DAY
     Route: 055
     Dates: start: 19971001

REACTIONS (11)
  - ASTHENIA [None]
  - FATIGUE [None]
  - DRUG INEFFECTIVE [None]
  - SLUGGISHNESS [None]
  - PRODUCT QUALITY ISSUE [None]
  - LISTLESS [None]
  - SOMNOLENCE [None]
  - LETHARGY [None]
  - SLEEP DISORDER [None]
  - HYPERSOMNIA [None]
  - TREATMENT NONCOMPLIANCE [None]
